FAERS Safety Report 6530105-0 (Version None)
Quarter: 2010Q1

REPORT INFORMATION
  Report Type: 
  Country: None (occurrence: None)
  Receive Date: 20100107
  Receipt Date: 20091229
  Transmission Date: 20100710
  Serious: Yes (Other)
  Sender: FDA-Public Use
  Company Number: US-JNJFOC-20100100328

PATIENT
  Age: 68 Year
  Sex: Female
  Weight: 73.03 kg

DRUGS (16)
  1. TYLENOL (CAPLET) [Suspect]
     Route: 048
  2. TYLENOL (CAPLET) [Suspect]
     Indication: ARTHRITIS
     Route: 048
  3. MAXZIDE [Concomitant]
     Indication: HYPERTENSION
  4. PROTONIX [Concomitant]
     Indication: GASTROOESOPHAGEAL REFLUX DISEASE
  5. GLUCOSAMINE + CHONDROITIN COMBO [Concomitant]
     Indication: ARTHROPATHY
  6. FISH OIL [Concomitant]
     Indication: MEDICAL DIET
  7. CALCIUM W/ VITAMIN D [Concomitant]
     Indication: MEDICAL DIET
  8. MULTI-VITAMINS [Concomitant]
     Indication: MEDICAL DIET
  9. ASPIRIN [Concomitant]
     Indication: CARDIOVASCULAR EVENT PROPHYLAXIS
  10. EXTRA STRENGTH TYLENOL PM [Concomitant]
     Indication: PAIN
  11. EXTRA STRENGTH TYLENOL PM [Concomitant]
     Indication: INSOMNIA
  12. EXTRA STRENGTH TYLENOL [Concomitant]
     Indication: PAIN
  13. VALIUM [Concomitant]
     Indication: BACK PAIN
  14. DEMEROL [Concomitant]
     Indication: BACK PAIN
  15. PHENERGAN HCL [Concomitant]
     Indication: BACK PAIN
  16. PLAQUENIL [Concomitant]
     Indication: SJOGREN'S SYNDROME

REACTIONS (4)
  - ABDOMINAL PAIN UPPER [None]
  - BLOOD URINE PRESENT [None]
  - NAUSEA [None]
  - PRODUCT QUALITY ISSUE [None]
